FAERS Safety Report 7401067-9 (Version None)
Quarter: 2011Q2

REPORT INFORMATION
  Report Type: 
  Country: None (occurrence: None)
  Receive Date: 20110407
  Receipt Date: 20110331
  Transmission Date: 20111010
  Serious: Yes (Hospitalization)
  Sender: FDA-Public Use
  Company Number: FR-PFIZER INC-2011071576

PATIENT
  Age: 47 Year
  Sex: Male

DRUGS (4)
  1. XANAX [Suspect]
     Indication: ANXIETY
     Dosage: 2 MG/DAY (+/- 0.5 MG/DAY)
     Route: 048
  2. PARKINANE [Concomitant]
     Indication: PROPHYLAXIS
     Dosage: UNK
     Dates: end: 20110128
  3. HALDOL [Suspect]
     Indication: PSYCHOTIC DISORDER
     Dosage: UNK
     Route: 048
  4. TERALITHE [Suspect]
     Indication: PSYCHOTIC DISORDER
     Dosage: 1000 MG, 1X/DAY
     Route: 048

REACTIONS (3)
  - EXTRAPYRAMIDAL DISORDER [None]
  - MENTAL DISORDER [None]
  - SALIVARY HYPERSECRETION [None]
